FAERS Safety Report 7276748-0 (Version None)
Quarter: 2011Q1

REPORT INFORMATION
  Report Type: 
  Country: None (occurrence: None)
  Receive Date: 20110204
  Receipt Date: 20110202
  Transmission Date: 20110831
  Serious: Yes (Life-Threatening, Hospitalization)
  Sender: FDA-Public Use
  Company Number: TR-PFIZER INC-2008064225

PATIENT
  Age: 69 Year
  Sex: Female
  Weight: 80 kg

DRUGS (1)
  1. SUNITINIB MALATE [Suspect]
     Indication: METASTATIC RENAL CELL CARCINOMA
     Dosage: 25 MG, 1X/DAY
     Route: 048
     Dates: start: 20060516, end: 20080729

REACTIONS (2)
  - AZOTAEMIA [None]
  - HYPERKALAEMIA [None]
